FAERS Safety Report 14126318 (Version 1)
Quarter: 2017Q4

REPORT INFORMATION
  Report Type: Spontaneous
  Country: US (occurrence: US)
  Receive Date: 20171025
  Receipt Date: 20171025
  Transmission Date: 20180321
  Serious: No
  Sender: FDA-Public Use
  Company Number: US-BAUSCH-BL-2016-028582

PATIENT
  Sex: Female
  Weight: 72.12 kg

DRUGS (1)
  1. ATIVAN [Suspect]
     Active Substance: LORAZEPAM
     Indication: PRODUCT USED FOR UNKNOWN INDICATION
     Dosage: 1 MG EVERYDAY AND 0.5 MG AT NIGHT
     Route: 048

REACTIONS (2)
  - Feeling abnormal [Unknown]
  - Dyspnoea [Unknown]
